FAERS Safety Report 6900750-9 (Version None)
Quarter: 2010Q3

REPORT INFORMATION
  Report Type: 
  Country: None (occurrence: None)
  Receive Date: 20100730
  Receipt Date: 20100720
  Transmission Date: 20110219
  Serious: Yes (Death)
  Sender: FDA-Public Use
  Company Number: B0667261A

PATIENT

DRUGS (2)
  1. MELPHALAN HYDROCHLORIDE [Suspect]
     Indication: AMYLOIDOSIS
  2. STEM CELL TRANSPLANT (FORMULATION UNKNOWN) (STEM CELL TRANSPLANT) [Suspect]

REACTIONS (1)
  - HEPATIC FAILURE [None]
